FAERS Safety Report 9495065 (Version 2)
Quarter: 2013Q4

REPORT INFORMATION
  Report Type: Spontaneous
  Country: JP (occurrence: JP)
  Receive Date: 20130903
  Receipt Date: 20131001
  Transmission Date: 20140711
  Serious: Yes (Other)
  Sender: FDA-Public Use
  Company Number: JP-009507513-1308JPN015230

PATIENT
  Age: 36 Year
  Sex: Female
  Weight: 52 kg

DRUGS (4)
  1. GANIREST [Suspect]
     Indication: PREVENTION OF PREMATURE OVULATION
     Dosage: 0.25 MG, QD
     Route: 058
     Dates: start: 20121202, end: 20121202
  2. GANIREST [Suspect]
     Dosage: 0.25 MG, QD
     Route: 058
     Dates: start: 20121201, end: 20121201
  3. MENOTROPINS [Concomitant]
     Indication: OVULATION INDUCTION
     Dosage: 150 (UNDER 1000 UNIT)
     Route: 030
     Dates: start: 20121124, end: 20121130
  4. MENOTROPINS [Concomitant]
     Dosage: 225 (UNDER 1000 UNIT)
     Route: 030
     Dates: start: 20121201, end: 20121202

REACTIONS (6)
  - Loss of consciousness [Recovered/Resolved]
  - Blood pressure decreased [Recovered/Resolved]
  - Feeling abnormal [Recovered/Resolved]
  - Pallor [Recovering/Resolving]
  - Erythema [Unknown]
  - Erythema [Recovered/Resolved]
